FAERS Safety Report 25213970 (Version 1)
Quarter: 2025Q2

REPORT INFORMATION
  Report Type: Report from Study
  Country: US (occurrence: US)
  Receive Date: 20250418
  Receipt Date: 20250418
  Transmission Date: 20250717
  Serious: Yes (Other)
  Sender: ALEXION PHARMACEUTICALS
  Company Number: US-AstraZeneca-CH-00848302A

PATIENT
  Age: 61 Year

DRUGS (1)
  1. ACALABRUTINIB [Suspect]
     Active Substance: ACALABRUTINIB
     Indication: Non-Hodgkin^s lymphoma
     Dosage: 100 MILLIGRAM, BID

REACTIONS (10)
  - Pneumonia [Unknown]
  - Loss of personal independence in daily activities [Unknown]
  - Pain [Unknown]
  - Myocardial infarction [Unknown]
  - Gait inability [Unknown]
  - Dizziness [Unknown]
  - Gait disturbance [Unknown]
  - General physical health deterioration [Unknown]
  - Emotional disorder [Unknown]
  - Depressed mood [Unknown]
